FAERS Safety Report 23423477 (Version 1)
Quarter: 2024Q1

REPORT INFORMATION
  Report Type: Spontaneous
  Country: US (occurrence: US)
  Receive Date: 20240119
  Receipt Date: 20240119
  Transmission Date: 20240410
  Serious: No
  Sender: FDA-Public Use
  Company Number: US-BAUSCH-BL-2024-000659

PATIENT
  Age: 78 Year
  Sex: Female

DRUGS (2)
  1. ARESTIN [Suspect]
     Active Substance: MINOCYCLINE HYDROCHLORIDE
     Indication: Product used for unknown indication
     Route: 065
  2. ARESTIN [Suspect]
     Active Substance: MINOCYCLINE HYDROCHLORIDE

REACTIONS (6)
  - Gingival bleeding [Unknown]
  - Gingival blister [Unknown]
  - Depressed mood [Unknown]
  - Crying [Unknown]
  - Stress [Unknown]
  - Gingival swelling [Unknown]

NARRATIVE: CASE EVENT DATE: 20230801
